FAERS Safety Report 16853415 (Version 1)
Quarter: 2019Q3

REPORT INFORMATION
  Report Type: Report from Study
  Country: FR (occurrence: FR)
  Receive Date: 20190925
  Receipt Date: 20190925
  Transmission Date: 20191005
  Serious: Yes (Hospitalization)
  Sender: FDA-Public Use
  Company Number: FR-INCYTE CORPORATION-2019IN009532

PATIENT

DRUGS (3)
  1. JAKAVI [Suspect]
     Active Substance: RUXOLITINIB
     Dosage: 40 MG, UNK
     Route: 048
     Dates: start: 20190314, end: 20190603
  2. JAKAVI [Suspect]
     Active Substance: RUXOLITINIB
     Dosage: 50 MG, UNK
     Route: 048
     Dates: start: 20190604
  3. JAKAVI [Suspect]
     Active Substance: RUXOLITINIB
     Indication: MYELOFIBROSIS
     Dosage: 30 MG, UNK
     Route: 048
     Dates: start: 20190305, end: 20190313

REACTIONS (4)
  - Nausea [Unknown]
  - Peritoneal haemorrhage [Not Recovered/Not Resolved]
  - Flank pain [Unknown]
  - Splenic rupture [Not Recovered/Not Resolved]

NARRATIVE: CASE EVENT DATE: 20190911
